FAERS Safety Report 10334130 (Version 1)
Quarter: 2014Q3

REPORT INFORMATION
  Report Type: Report from Study
  Country: US (occurrence: US)
  Receive Date: 20140723
  Receipt Date: 20140723
  Transmission Date: 20150326
  Serious: Yes (Other)
  Sender: FDA-Public Use
  Company Number: US-ROCHE-1437708

PATIENT
  Sex: Female
  Weight: 42.27 kg

DRUGS (3)
  1. NUTROPIN [Suspect]
     Active Substance: SOMATROPIN
     Indication: BODY HEIGHT BELOW NORMAL
     Dosage: 20 MG/2ML
     Route: 058
     Dates: start: 200910
  2. ORTHO EVRA [Concomitant]
     Active Substance: ETHINYL ESTRADIOL\NORELGESTROMIN
     Indication: SECONDARY HYPOGONADISM
     Dosage: ONE PATCH?150-20 MCG/24 HR
     Route: 062
     Dates: start: 201310
  3. NUTROPIN [Suspect]
     Active Substance: SOMATROPIN
     Indication: TURNER^S SYNDROME

REACTIONS (5)
  - Growth retardation [Unknown]
  - Epistaxis [Unknown]
  - Vitamin D deficiency [Unknown]
  - Autoimmune thyroiditis [Unknown]
  - Hair growth abnormal [Unknown]
